FAERS Safety Report 25873555 (Version 1)
Quarter: 2025Q4

REPORT INFORMATION
  Report Type: Report from Study
  Country: US (occurrence: US)
  Receive Date: 20251002
  Receipt Date: 20251002
  Transmission Date: 20260117
  Serious: Yes (Other)
  Sender: AGIOS PHARMACEUTICALS
  Company Number: US-AGIOS-2509US04485

PATIENT
  Age: 80 Year
  Sex: Female

DRUGS (1)
  1. MITAPIVAT [Suspect]
     Active Substance: MITAPIVAT
     Indication: Pyruvate kinase deficiency anaemia
     Dosage: 50 MILLIGRAM, BID
     Route: 048
     Dates: start: 20220416

REACTIONS (5)
  - Atrial fibrillation [Unknown]
  - Dementia [Unknown]
  - Anaemia [Unknown]
  - Haemoglobin decreased [Recovered/Resolved]
  - Memory impairment [Unknown]
